FAERS Safety Report 7798266-3 (Version None)
Quarter: 2011Q4

REPORT INFORMATION
  Report Type: 
  Country: None (occurrence: None)
  Receive Date: 20111004
  Receipt Date: 20110916
  Transmission Date: 20120403
  Serious: Yes (Hospitalization)
  Sender: FDA-Public Use
  Company Number: 2011S1000073

PATIENT
  Age: 58 Year
  Sex: Male
  Weight: 73.0291 kg

DRUGS (11)
  1. PREDNISONE [Concomitant]
  2. LORTAB [Concomitant]
  3. SOLU-MEDROL [Concomitant]
  4. BENADRYL /00945501/ [Concomitant]
  5. TYLENOL-500 [Concomitant]
  6. KRYSTEXXA [Suspect]
     Indication: GOUTY TOPHUS
     Dosage: X1;IV 8 MG;X1;IV
     Route: 042
     Dates: start: 20110915, end: 20110915
  7. KRYSTEXXA [Suspect]
     Indication: GOUTY TOPHUS
     Dosage: X1;IV 8 MG;X1;IV
     Route: 042
     Dates: start: 20110825, end: 20110825
  8. KRYSTEXXA [Suspect]
     Indication: GOUTY TOPHUS
     Dosage: X1;IV 8 MG;X1;IV
     Route: 042
     Dates: start: 20110811, end: 20110811
  9. NEXIUM /01479303/ [Concomitant]
  10. COLCRYS [Concomitant]
  11. ALLOPURINOL [Concomitant]

REACTIONS (15)
  - ARTHRALGIA [None]
  - PRURITUS [None]
  - BURNING SENSATION [None]
  - PYREXIA [None]
  - RESPIRATORY RATE DECREASED [None]
  - LOSS OF CONSCIOUSNESS [None]
  - NAUSEA [None]
  - INFUSION RELATED REACTION [None]
  - CHOKING SENSATION [None]
  - CYANOSIS [None]
  - THERAPEUTIC RESPONSE DECREASED [None]
  - VOMITING [None]
  - BRUXISM [None]
  - URINARY INCONTINENCE [None]
  - BLOOD PRESSURE DECREASED [None]
